FAERS Safety Report 11983779 (Version 2)
Quarter: 2016Q1

REPORT INFORMATION
  Report Type: Report from Study
  Country: ES (occurrence: ES)
  Receive Date: 20160201
  Receipt Date: 20160210
  Transmission Date: 20160526
  Serious: Yes (Death, Hospitalization)
  Sender: FDA-Public Use
  Company Number: ES-ABBVIE-16P-144-1540764-00

PATIENT
  Age: 59 Year
  Sex: Male

DRUGS (1)
  1. DUODOPA [Suspect]
     Active Substance: CARBIDOPA\LEVODOPA
     Indication: PARKINSON^S DISEASE
     Route: 050
     Dates: start: 20131211

REACTIONS (2)
  - Post procedural complication [Fatal]
  - Extremity necrosis [Unknown]

NARRATIVE: CASE EVENT DATE: 201601
